FAERS Safety Report 9485765 (Version 1)
Quarter: 2013Q3

REPORT INFORMATION
  Report Type: Spontaneous
  Country: US (occurrence: None)
  Receive Date: 20130827
  Receipt Date: 20130827
  Transmission Date: 20140515
  Serious: Yes (Life-Threatening)
  Sender: FDA-Public Use
  Company Number: None

PATIENT
  Sex: 0

DRUGS (2)
  1. CLARITHROMYCIN [Suspect]
     Route: 048
     Dates: start: 20130606
  2. AMOXIL [Suspect]
     Route: 048
     Dates: start: 20120606

REACTIONS (3)
  - Renal failure [None]
  - Dehydration [None]
  - Diarrhoea [None]
